FAERS Safety Report 19354004 (Version 1)
Quarter: 2021Q2

REPORT INFORMATION
  Report Type: Spontaneous
  Country: HU (occurrence: HU)
  Receive Date: 20210531
  Receipt Date: 20210531
  Transmission Date: 20210717
  Serious: Yes (Hospitalization, Other)
  Sender: FDA-Public Use
  Company Number: HU-TEVA-2021-HU-1917008

PATIENT
  Age: 56 Year
  Sex: Female

DRUGS (6)
  1. COPAXONE [Suspect]
     Active Substance: GLATIRAMER ACETATE
     Indication: RELAPSING-REMITTING MULTIPLE SCLEROSIS
     Route: 058
     Dates: start: 20210208
  2. COVEREX AS [Concomitant]
     Active Substance: PERINDOPRIL ARGININE
     Dosage: 10 MILLIGRAM DAILY;
  3. DOXAZOSIN [Concomitant]
     Active Substance: DOXAZOSIN MESYLATE
     Dosage: 8 MILLIGRAM DAILY;
  4. LERCATON [Concomitant]
     Active Substance: LERCANIDIPINE HYDROCHLORIDE
     Dosage: 20 MILLIGRAM DAILY;
  5. NEBILET [Concomitant]
     Active Substance: NEBIVOLOL
     Dosage: 10 MILLIGRAM DAILY;
  6. BACLOFEN. [Concomitant]
     Active Substance: BACLOFEN

REACTIONS (15)
  - Renal failure [Not Recovered/Not Resolved]
  - Urosepsis [Recovered/Resolved]
  - Anuria [Not Recovered/Not Resolved]
  - Pyrexia [Recovered/Resolved]
  - Hemiplegia [Unknown]
  - Somnolence [Unknown]
  - Acute kidney injury [Not Recovered/Not Resolved]
  - Aphasia [Unknown]
  - Ataxia [Unknown]
  - Muscular weakness [Unknown]
  - Azotaemia [Not Recovered/Not Resolved]
  - Cerebrovascular accident [Unknown]
  - Epilepsy [Unknown]
  - Herpes zoster [Unknown]
  - Haemodialysis [Not Recovered/Not Resolved]

NARRATIVE: CASE EVENT DATE: 2021
